FAERS Safety Report 8572354-6 (Version None)
Quarter: 2012Q3

REPORT INFORMATION
  Report Type: 
  Country: None (occurrence: None)
  Receive Date: 20120806
  Receipt Date: 20120727
  Transmission Date: 20120928
  Serious: Yes (Hospitalization, Other)
  Sender: FDA-Public Use
  Company Number: US-009507513-1203USA00181

PATIENT

DRUGS (8)
  1. FOSAMAX [Suspect]
     Indication: OSTEOPOROSIS
     Dosage: 70 MG, UNK
     Route: 048
     Dates: start: 19990101
  2. FOSAMAX [Suspect]
     Dosage: 70 MG, UNK
     Route: 048
     Dates: start: 20100706, end: 20100901
  3. FOSAMAX [Suspect]
     Dosage: UNK
     Route: 048
     Dates: start: 20070101, end: 20101201
  4. FOSAMAX PLUS D [Suspect]
     Dosage: 70 MG/2800
     Route: 048
     Dates: start: 20070119, end: 20080401
  5. FOSAMAX [Suspect]
     Dosage: 70 MG, UNK
     Route: 048
     Dates: start: 20100507, end: 20100701
  6. FOSAMAX PLUS D [Suspect]
     Dosage: 70 MG/2800
     Route: 048
     Dates: start: 20100828
  7. FOSAMAX PLUS D [Suspect]
     Indication: OSTEOPOROSIS
     Dosage: 70 MG, UNK
     Route: 048
     Dates: start: 19990101
  8. FOSAMAX [Suspect]
     Dosage: 70 MG, UNK
     Route: 048
     Dates: start: 20100217, end: 20100501

REACTIONS (26)
  - MICTURITION URGENCY [None]
  - GASTROOESOPHAGEAL REFLUX DISEASE [None]
  - HIATUS HERNIA [None]
  - ORTHOSTATIC HYPERTENSION [None]
  - EXCORIATION [None]
  - FEMUR FRACTURE [None]
  - HIP FRACTURE [None]
  - ANAEMIA POSTOPERATIVE [None]
  - HEAD INJURY [None]
  - FALL [None]
  - HYPOCALCAEMIA [None]
  - OSTEOARTHRITIS [None]
  - FOOT FRACTURE [None]
  - RADIUS FRACTURE [None]
  - ULNA FRACTURE [None]
  - COGNITIVE DISORDER [None]
  - GINGIVITIS [None]
  - CONSTIPATION [None]
  - LUMBAR VERTEBRAL FRACTURE [None]
  - IMPAIRED SELF-CARE [None]
  - CLOSTRIDIUM DIFFICILE COLITIS [None]
  - GAIT DISTURBANCE [None]
  - ESCHERICHIA URINARY TRACT INFECTION [None]
  - ANKLE FRACTURE [None]
  - MYOCARDIAL INFARCTION [None]
  - CELLULITIS [None]
